FAERS Safety Report 23429543 (Version 1)
Quarter: 2024Q1

REPORT INFORMATION
  Report Type: Spontaneous
  Country: US (occurrence: None)
  Receive Date: 20240122
  Receipt Date: 20240122
  Transmission Date: 20240409
  Serious: Yes (Other)
  Sender: FDA-Public Use
  Company Number: None

PATIENT
  Age: 92 Year
  Sex: Male
  Weight: 74.25 kg

DRUGS (7)
  1. GEMTESA [Suspect]
     Active Substance: VIBEGRON
     Indication: Hypertonic bladder
     Dosage: 1 TABLET AT BEDTIME ORAL?
     Route: 048
  2. asperin [Concomitant]
  3. janovia [Concomitant]
  4. trolocy [Concomitant]
  5. warfran [Concomitant]
  6. glybride [Concomitant]
  7. LOSARTAN [Concomitant]
     Active Substance: LOSARTAN

REACTIONS (1)
  - Dysuria [None]

NARRATIVE: CASE EVENT DATE: 20231115
